FAERS Safety Report 6768102-2 (Version None)
Quarter: 2010Q2

REPORT INFORMATION
  Report Type: 
  Country: None (occurrence: None)
  Receive Date: 20100614
  Receipt Date: 20100605
  Transmission Date: 20101027
  Serious: Yes (Hospitalization)
  Sender: FDA-Public Use
  Company Number: GB-BAYER-200910708BNE

PATIENT
  Age: 75 Year
  Sex: Female

DRUGS (13)
  1. SORAFENIB [Suspect]
     Indication: DRUG USE FOR UNKNOWN INDICATION
     Dosage: UNIT DOSE: 200 MG
     Route: 048
     Dates: start: 20090108, end: 20090218
  2. CISPLATIN [Suspect]
     Indication: DRUG USE FOR UNKNOWN INDICATION
     Route: 042
     Dates: start: 20090129, end: 20090129
  3. GEMCITABINE HCL [Suspect]
     Indication: DRUG USE FOR UNKNOWN INDICATION
     Route: 042
     Dates: start: 20090205, end: 20090205
  4. SIMVASTIN [Concomitant]
     Indication: HYPERCHOLESTEROLAEMIA
     Dates: start: 20040101
  5. METFORMIN HCL [Concomitant]
     Indication: DIABETES MELLITUS
     Dates: start: 20020101
  6. ASPIRIN [Concomitant]
     Indication: PROPHYLAXIS
     Dates: start: 20040101
  7. AMLODIPINE [Concomitant]
     Indication: HYPERTENSION
     Dates: start: 20050101
  8. CANDESARTAN [Concomitant]
     Indication: HYPERTENSION
     Dates: start: 20050101
  9. PHOSPHATE [Concomitant]
     Indication: BLOOD PHOSPHORUS DECREASED
     Route: 042
     Dates: start: 20090330, end: 20090331
  10. PHOSPHATE [Concomitant]
     Route: 042
     Dates: start: 20090324, end: 20090325
  11. MAGNESIUM SULFATE [Concomitant]
     Indication: BLOOD MAGNESIUM DECREASED
     Route: 042
     Dates: start: 20090316, end: 20090316
  12. MAGNESIUM SULFATE [Concomitant]
     Route: 042
     Dates: start: 20090315, end: 20090315
  13. KABIVEN 9 [Concomitant]
     Indication: PARENTERAL NUTRITION
     Dosage: 1 BAG VIA CENTRAL LINE
     Route: 042
     Dates: start: 20090318, end: 20090328

REACTIONS (3)
  - EMPYEMA [None]
  - OEDEMA PERIPHERAL [None]
  - PNEUMONIA [None]
